FAERS Safety Report 11848615 (Version 1)
Quarter: 2015Q4

REPORT INFORMATION
  Report Type: Report from Study
  Country: BR (occurrence: BR)
  Receive Date: 20151218
  Receipt Date: 20151218
  Transmission Date: 20160305
  Serious: Yes (Other)
  Sender: FDA-Public Use
  Company Number: BR-ROCHE-1499072

PATIENT
  Age: 57 Year
  Sex: Female
  Weight: 67 kg

DRUGS (14)
  1. MABTHERA [Suspect]
     Active Substance: RITUXIMAB
     Route: 042
     Dates: end: 20150611
  2. TECNOMET [Concomitant]
     Active Substance: METHOTREXATE
     Indication: RHEUMATIC DISORDER
  3. EUTHYROX [Concomitant]
     Active Substance: LEVOTHYROXINE SODIUM
     Indication: THYROID DISORDER
  4. MABTHERA [Suspect]
     Active Substance: RITUXIMAB
     Dosage: CYCLE 3
     Route: 042
     Dates: end: 20151117
  5. SOLU-CORTEF [Concomitant]
     Active Substance: HYDROCORTISONE SODIUM SUCCINATE
     Indication: HYPERSENSITIVITY
     Route: 042
     Dates: start: 20151117, end: 20151117
  6. DIPHENHYDRAMINE. [Concomitant]
     Active Substance: DIPHENHYDRAMINE
     Indication: PREMEDICATION
     Route: 065
     Dates: start: 20151117, end: 20151117
  7. MABTHERA [Suspect]
     Active Substance: RITUXIMAB
     Indication: RHEUMATOID ARTHRITIS
     Route: 042
     Dates: start: 20140228
  8. SOLU-CORTEF [Concomitant]
     Active Substance: HYDROCORTISONE SODIUM SUCCINATE
     Indication: PREMEDICATION
     Route: 042
     Dates: start: 20150522, end: 20150522
  9. MABTHERA [Suspect]
     Active Substance: RITUXIMAB
     Route: 042
     Dates: start: 20150522, end: 20150522
  10. ANTAK [Concomitant]
     Active Substance: RANITIDINE HYDROCHLORIDE
     Indication: PREMEDICATION
     Route: 042
     Dates: start: 20141125
  11. DIFENIDRIN [Concomitant]
     Active Substance: DIPHENHYDRAMINE
     Indication: PREMEDICATION
     Route: 042
     Dates: start: 20141125
  12. EUTIROX [Concomitant]
     Active Substance: LEVOTHYROXINE SODIUM
  13. DIFENIDRIN [Concomitant]
     Active Substance: DIPHENHYDRAMINE
     Dosage: ONE VIAL
     Route: 042
     Dates: start: 20150522, end: 20150522
  14. NIMESULIDE [Concomitant]
     Active Substance: NIMESULIDE

REACTIONS (12)
  - Laryngeal oedema [Recovered/Resolved]
  - Oropharyngeal pain [Recovered/Resolved]
  - Burning sensation [Unknown]
  - Dysphagia [Recovered/Resolved]
  - Hypersensitivity [Recovered/Resolved]
  - Suffocation feeling [Unknown]
  - Allergic pharyngitis [Unknown]
  - Malaise [Unknown]
  - Flushing [Recovered/Resolved]
  - Throat irritation [Unknown]
  - Rash [Unknown]
  - Ocular hyperaemia [Unknown]

NARRATIVE: CASE EVENT DATE: 20141125
